FAERS Safety Report 18147358 (Version 2)
Quarter: 2020Q3

REPORT INFORMATION
  Report Type: Spontaneous
  Country: AU (occurrence: AU)
  Receive Date: 20200814
  Receipt Date: 20200821
  Transmission Date: 20201103
  Serious: Yes (Death, Hospitalization, Other)
  Sender: FDA-Public Use
  Company Number: AU-ABBVIE-20K-008-3525142-00

PATIENT
  Age: 45 Year
  Sex: Female
  Weight: 45.4 kg

DRUGS (12)
  1. THIOGUANINE [Concomitant]
     Active Substance: THIOGUANINE
     Indication: ACUTE MYELOID LEUKAEMIA
     Route: 048
     Dates: start: 20200707, end: 20200801
  2. VENETOCLAX. [Suspect]
     Active Substance: VENETOCLAX
     Indication: ACUTE MYELOID LEUKAEMIA
     Route: 048
     Dates: start: 20200513, end: 20200723
  3. VALACYCLOVIR [Concomitant]
     Active Substance: VALACYCLOVIR HYDROCHLORIDE
     Indication: PROPHYLAXIS
     Route: 048
     Dates: start: 20200513, end: 20200801
  4. CITRAMIN [Concomitant]
     Indication: ACUTE MYELOID LEUKAEMIA
     Route: 058
     Dates: start: 20200512, end: 20200801
  5. RIBAVIRIN. [Concomitant]
     Active Substance: RIBAVIRIN
     Indication: ACUTE MYELOID LEUKAEMIA
     Route: 048
     Dates: start: 20200615, end: 20200801
  6. POSACONAZOLE [Concomitant]
     Active Substance: POSACONAZOLE
     Indication: PROPHYLAXIS
     Route: 048
     Dates: start: 20200512, end: 20200801
  7. NEXPRO FORTE [Concomitant]
     Indication: PROPHYLAXIS
     Dosage: 1 TABLET MONDAY AND THURSDAY
     Route: 048
     Dates: start: 20200513, end: 20200730
  8. KEPPRA [Concomitant]
     Active Substance: LEVETIRACETAM
     Indication: SEIZURE
     Dosage: INTRAVENOUS
     Dates: start: 20200729, end: 20200803
  9. TRANEXAMIC ACID. [Concomitant]
     Active Substance: TRANEXAMIC ACID
     Indication: PRODUCT USED FOR UNKNOWN INDICATION
     Route: 048
     Dates: start: 20200610, end: 20200729
  10. PANTOPRAZOLE [Concomitant]
     Active Substance: PANTOPRAZOLE
     Indication: GASTROOESOPHAGEAL REFLUX DISEASE
     Route: 048
     Dates: start: 20200603, end: 20200603
  11. ALLOPURINOL. [Concomitant]
     Active Substance: ALLOPURINOL
     Indication: PROPHYLAXIS
     Route: 048
     Dates: start: 20200512, end: 20200801
  12. PANTOPRAZOLE [Concomitant]
     Active Substance: PANTOPRAZOLE
     Indication: BLOOD PH DECREASED

REACTIONS (5)
  - General physical health deterioration [Unknown]
  - Acute myeloid leukaemia [Fatal]
  - Gastrointestinal disorder [Recovered/Resolved]
  - Posterior reversible encephalopathy syndrome [Recovered/Resolved]
  - Seizure [Unknown]

NARRATIVE: CASE EVENT DATE: 2020
